FAERS Safety Report 17845106 (Version 3)
Quarter: 2020Q4

REPORT INFORMATION
  Report Type: Report from Study
  Country: None (occurrence: CA)
  Receive Date: 20200601
  Receipt Date: 20201125
  Transmission Date: 20210113
  Serious: Yes (Other)
  Sender: FDA-Public Use
  Company Number: CA-ABBVIE-20K-028-3423233-00

PATIENT
  Sex: Female

DRUGS (5)
  1. HUMIRA [Suspect]
     Active Substance: ADALIMUMAB
     Indication: CROHN^S DISEASE
     Route: 058
     Dates: start: 20110727
  2. ENOXAPARIN [Concomitant]
     Active Substance: ENOXAPARIN
     Indication: PRODUCT USED FOR UNKNOWN INDICATION
     Route: 065
  3. ANCEF [Concomitant]
     Active Substance: CEFAZOLIN SODIUM
     Indication: PRODUCT USED FOR UNKNOWN INDICATION
     Route: 065
  4. FLAGYL [Concomitant]
     Active Substance: METRONIDAZOLE\METRONIDAZOLE HYDROCHLORIDE
     Indication: PRODUCT USED FOR UNKNOWN INDICATION
     Route: 065
  5. LOMOTIL [Concomitant]
     Active Substance: ATROPINE SULFATE\DIPHENOXYLATE HYDROCHLORIDE
     Indication: PRODUCT USED FOR UNKNOWN INDICATION
     Dates: start: 2020

REACTIONS (19)
  - Post procedural complication [Unknown]
  - Abdominal symptom [Unknown]
  - Pouchitis [Unknown]
  - Inflammation [Not Recovered/Not Resolved]
  - Dyspepsia [Unknown]
  - Proctitis [Unknown]
  - Gastrointestinal wall thickening [Unknown]
  - Abnormal faeces [Not Recovered/Not Resolved]
  - Gastritis [Not Recovered/Not Resolved]
  - Pelvic pouch procedure [Unknown]
  - Small intestinal obstruction [Unknown]
  - Device occlusion [Unknown]
  - Anastomotic stenosis [Unknown]
  - Gastric ulcer [Unknown]
  - Platelet count increased [Unknown]
  - Gastrointestinal stoma complication [Not Recovered/Not Resolved]
  - Abdominal adhesions [Unknown]
  - Ulcer [Unknown]
  - Gastrooesophageal reflux disease [Not Recovered/Not Resolved]

NARRATIVE: CASE EVENT DATE: 2019
